FAERS Safety Report 5948725-0 (Version None)
Quarter: 2008Q4

REPORT INFORMATION
  Report Type: 
  Country: None (occurrence: None)
  Receive Date: 20081111
  Receipt Date: 20081103
  Transmission Date: 20090506
  Serious: Yes (Hospitalization, Other)
  Sender: FDA-Public Use
  Company Number: US-GENENTECH-261542

PATIENT
  Age: 46 Year
  Sex: Female
  Weight: 70 kg

DRUGS (3)
  1. BEVACIZUMAB [Suspect]
     Indication: PANCREATIC CARCINOMA METASTATIC
     Dosage: 10 MG/KG, Q2W
     Route: 042
     Dates: start: 20080320
  2. GEMCITABINE HCL [Concomitant]
     Indication: PANCREATIC CARCINOMA METASTATIC
     Dosage: UNK, Q2W
     Dates: start: 20080320
  3. DOCETAXEL [Concomitant]
     Indication: PANCREATIC CARCINOMA METASTATIC
     Dosage: UNK, Q2W
     Dates: start: 20080320

REACTIONS (2)
  - ANAEMIA [None]
  - BACK PAIN [None]
